FAERS Safety Report 6733439-X (Version None)
Quarter: 2010Q2

REPORT INFORMATION
  Report Type: 
  Country: None (occurrence: None)
  Receive Date: 20100520
  Receipt Date: 20100512
  Transmission Date: 20101027
  Serious: Yes (Hospitalization)
  Sender: FDA-Public Use
  Company Number: FR-KINGPHARMUSA00001-K201000588

PATIENT
  Age: 82 Year
  Sex: Female

DRUGS (13)
  1. ALTACE [Suspect]
     Dosage: 1.25 MG, UNK
     Route: 048
     Dates: start: 20091210, end: 20100317
  2. OFLOCET [Suspect]
     Indication: ARTHRITIS BACTERIAL
     Dosage: UNK
     Route: 048
     Dates: start: 20091120, end: 20100312
  3. RIFADIN [Suspect]
     Indication: ARTHRITIS BACTERIAL
     Dosage: UNK
     Route: 048
     Dates: start: 20091120, end: 20100312
  4. ESOMEPRAZOLE [Suspect]
     Dosage: UNK
     Route: 048
     Dates: start: 20091120, end: 20100311
  5. TRIFLUCAN [Suspect]
     Dosage: UNK
     Route: 048
     Dates: start: 20091211, end: 20100311
  6. VASTAREL [Concomitant]
     Dosage: UNK
     Dates: start: 20091120, end: 20100311
  7. LEVOTHYROXINE SODIUM [Concomitant]
  8. FENOFIBRATE [Concomitant]
     Dosage: UNK
     Dates: start: 20091120, end: 20100311
  9. ASPEGIC 1000 [Concomitant]
     Dosage: UNK
     Dates: start: 20091120
  10. CALCIPARINE [Concomitant]
     Dosage: UNK
     Dates: start: 20091201
  11. ZOLPIDEM [Concomitant]
     Dosage: UNK
     Dates: start: 20091201
  12. SPASFON [Concomitant]
     Dosage: UNK
     Dates: start: 20091201
  13. DAFALGAN [Concomitant]
     Dosage: UNK
     Dates: start: 20091201

REACTIONS (4)
  - ANAEMIA [None]
  - INFLAMMATION [None]
  - LEUKOPENIA [None]
  - NEUTROPENIA [None]
